FAERS Safety Report 7377290-9 (Version None)
Quarter: 2011Q1

REPORT INFORMATION
  Report Type: 
  Country: None (occurrence: None)
  Receive Date: 20110316
  Receipt Date: 20110301
  Transmission Date: 20110831
  Serious: Yes (Life-Threatening, Hospitalization)
  Sender: FDA-Public Use
  Company Number: WAES 1005USA02795

PATIENT
  Age: 67 Year
  Sex: Male

DRUGS (5)
  1. AMLODIPINE BESYLATE [Concomitant]
  2. RAMIPRIL [Concomitant]
  3. PLACEBO [Suspect]
     Indication: ACUTE CORONARY SYNDROME
     Route: 048
     Dates: start: 20070529
  4. ZOCOR [Suspect]
     Indication: ACUTE CORONARY SYNDROME
     Dosage: 80 MG/DAILY
     Dates: start: 20070529
  5. KARDEGIC [Concomitant]

REACTIONS (2)
  - RECTAL CANCER [None]
  - GENERAL PHYSICAL HEALTH DETERIORATION [None]
